FAERS Safety Report 8546316-9 (Version None)
Quarter: 2012Q3

REPORT INFORMATION
  Report Type: 
  Country: None (occurrence: None)
  Receive Date: 20120727
  Receipt Date: 20111213
  Transmission Date: 20120928
  Serious: No
  Sender: FDA-Public Use
  Company Number: US-ASTRAZENECA-2011SE75732

PATIENT
  Age: 17 Year
  Sex: Female

DRUGS (1)
  1. SEROQUEL [Suspect]
     Dosage: 100 MG QAM AND 450 MG HS
     Route: 048

REACTIONS (3)
  - PLATELET COUNT INCREASED [None]
  - LYMPHOCYTE COUNT INCREASED [None]
  - EOSINOPHIL COUNT INCREASED [None]
